FAERS Safety Report 9751031 (Version 2)
Quarter: 2013Q4

REPORT INFORMATION
  Report Type: Spontaneous
  Country: US (occurrence: US)
  Receive Date: 20131212
  Receipt Date: 20131213
  Transmission Date: 20140711
  Serious: No
  Sender: FDA-Public Use
  Company Number: US-TEVA-399298USA

PATIENT
  Age: 25 Year
  Sex: Female
  Weight: 63.11 kg

DRUGS (6)
  1. PARAGARD 380A [Suspect]
     Indication: CONTRACEPTION
     Route: 015
     Dates: start: 20130306, end: 20130417
  2. PARAGARD 380A [Suspect]
     Route: 015
     Dates: start: 20130417
  3. BIOTIN [Concomitant]
     Indication: VITAMIN SUPPLEMENTATION
  4. MULTIVITAMIN [Concomitant]
     Indication: VITAMIN SUPPLEMENTATION
  5. IRON [Concomitant]
     Indication: VITAMIN SUPPLEMENTATION
  6. IBUPROFEN [Concomitant]

REACTIONS (1)
  - Device expulsion [Recovered/Resolved]
